FAERS Safety Report 23777475 (Version 1)
Quarter: 2024Q2

REPORT INFORMATION
  Report Type: Spontaneous
  Country: NL (occurrence: NL)
  Receive Date: 20240424
  Receipt Date: 20240424
  Transmission Date: 20240716
  Serious: Yes (Other)
  Sender: FDA-Public Use
  Company Number: None

PATIENT
  Age: 68 Year
  Sex: Female
  Weight: 62.5 kg

DRUGS (1)
  1. DEXAMETHASONE [Suspect]
     Active Substance: DEXAMETHASONE
     Indication: Dyspnoea
     Dosage: 4 MG ONCE PER DAY / BRAND NAME NOT SPECIFIED
     Route: 065
     Dates: start: 20240307

REACTIONS (3)
  - Visual impairment [Not Recovered/Not Resolved]
  - Dry skin [Recovered/Resolved]
  - Depressed mood [Recovered/Resolved]
